FAERS Safety Report 19242556 (Version 5)
Quarter: 2021Q2

REPORT INFORMATION
  Report Type: Spontaneous
  Country: US (occurrence: US)
  Receive Date: 20210510
  Receipt Date: 20210621
  Transmission Date: 20210717
  Serious: Yes (Hospitalization, Other)
  Sender: FDA-Public Use
  Company Number: US-LUNDBECK-DKLU3032680

PATIENT
  Age: 4 Year
  Sex: Female
  Weight: 6 kg

DRUGS (6)
  1. SABRIL [Suspect]
     Active Substance: VIGABATRIN
     Route: 048
     Dates: start: 202105
  2. DIAZEPAM. [Concomitant]
     Active Substance: DIAZEPAM
     Indication: SEIZURE
     Route: 054
  3. SABRIL [Suspect]
     Active Substance: VIGABATRIN
     Indication: INFANTILE SPASMS
     Route: 048
  4. DESMOPRESSIN [Concomitant]
     Active Substance: DESMOPRESSIN
     Indication: PRODUCT USED FOR UNKNOWN INDICATION
     Dosage: DISSOLVE TABLET IN 10 ML WATER
     Route: 048
  5. SABRIL [Suspect]
     Active Substance: VIGABATRIN
     Indication: SEIZURE
     Route: 048
  6. LORAZEPAM. [Concomitant]
     Active Substance: LORAZEPAM
     Indication: SEIZURE
     Route: 048

REACTIONS (14)
  - Acute kidney injury [Recovered/Resolved]
  - Anaemia macrocytic [Recovering/Resolving]
  - Vitamin D deficiency [Recovering/Resolving]
  - Urinary tract infection [Unknown]
  - Hypovolaemic shock [Recovered/Resolved]
  - Hypernatraemia [Recovering/Resolving]
  - Hypophosphataemia [Recovering/Resolving]
  - Dehydration [Recovered/Resolved]
  - Hypophagia [Recovering/Resolving]
  - Hypercalcaemia [Recovering/Resolving]
  - Seizure [Recovered/Resolved]
  - Pain [Recovering/Resolving]
  - Malnutrition [Unknown]
  - Product dose omission issue [Unknown]

NARRATIVE: CASE EVENT DATE: 202104
